FAERS Safety Report 23872182 (Version 4)
Quarter: 2024Q3

REPORT INFORMATION
  Report Type: Spontaneous
  Country: US (occurrence: US)
  Receive Date: 20240520
  Receipt Date: 20240725
  Transmission Date: 20241017
  Serious: No
  Sender: AMGEN
  Company Number: US-HORIZON THERAPEUTICS-HZN-2024-001472

PATIENT
  Sex: Female

DRUGS (2)
  1. TEPEZZA [Suspect]
     Active Substance: TEPROTUMUMAB-TRBW
     Indication: Product used for unknown indication
     Dosage: UNK, FIRST INFUSION
     Route: 042
  2. TEPEZZA [Suspect]
     Active Substance: TEPROTUMUMAB-TRBW
     Dosage: UNK, EIGHTH INFUSION
     Route: 042
     Dates: end: 2023

REACTIONS (1)
  - Hypoacusis [Not Recovered/Not Resolved]
